FAERS Safety Report 16851014 (Version 1)
Quarter: 2019Q3

REPORT INFORMATION
  Report Type: Spontaneous
  Country: DE (occurrence: DE)
  Receive Date: 20190925
  Receipt Date: 20190925
  Transmission Date: 20191005
  Serious: Yes (Other)
  Sender: FDA-Public Use
  Company Number: DE-US-PROVELL PHARMACEUTICALS LLC-E2B_90070110

PATIENT
  Sex: Female

DRUGS (1)
  1. EUTHYROX 25 NF [Suspect]
     Active Substance: LEVOTHYROXINE SODIUM
     Indication: POST PROCEDURAL HYPOTHYROIDISM

REACTIONS (5)
  - Dizziness [Unknown]
  - Alopecia [Unknown]
  - Vertigo positional [Unknown]
  - Glaucoma [Unknown]
  - Malaise [Unknown]
